FAERS Safety Report 24089703 (Version 1)
Quarter: 2024Q3

REPORT INFORMATION
  Report Type: Spontaneous
  Country: US (occurrence: US)
  Receive Date: 20240715
  Receipt Date: 20240715
  Transmission Date: 20241017
  Serious: No
  Sender: BIOCON
  Company Number: US-BIOCON BIOLOGICS LIMITED-2023M1039763

PATIENT

DRUGS (2)
  1. FULPHILA [Suspect]
     Active Substance: PEGFILGRASTIM-JMDB
     Indication: Leukopenia
     Dosage: EVERY TWO - THREE WEEKS
     Route: 058
  2. DEVICE [Suspect]
     Active Substance: DEVICE
     Indication: Leukopenia

REACTIONS (2)
  - Needle issue [Unknown]
  - Product quality issue [Unknown]
